FAERS Safety Report 13404443 (Version 1)
Quarter: 2017Q2

REPORT INFORMATION
  Report Type: Report from Study
  Country: CN (occurrence: CN)
  Receive Date: 20170405
  Receipt Date: 20170405
  Transmission Date: 20170830
  Serious: Yes (Death)
  Sender: FDA-Public Use
  Company Number: CN-CIPLA LTD.-2017CN05338

PATIENT

DRUGS (8)
  1. CYCLOPHOSPHAMIDE. [Suspect]
     Active Substance: CYCLOPHOSPHAMIDE
     Indication: DIFFUSE LARGE B-CELL LYMPHOMA
     Dosage: 750 MG/M2, ON DAY 1
     Route: 065
  2. EPIRUBICIN [Suspect]
     Active Substance: EPIRUBICIN
     Indication: DIFFUSE LARGE B-CELL LYMPHOMA
     Dosage: 70 MG/M2, ON DAY 1
     Route: 065
  3. VINCRISTINE [Suspect]
     Active Substance: VINCRISTINE
     Indication: DIFFUSE LARGE B-CELL LYMPHOMA
     Dosage: 1.4 MG/M2, (CAPPED AT 2 MG/DOSE) ON DAY 1
     Route: 065
  4. VINCRISTINE [Suspect]
     Active Substance: VINCRISTINE
     Indication: LYMPHOMA
  5. PREDNISONE. [Suspect]
     Active Substance: PREDNISONE
     Indication: DIFFUSE LARGE B-CELL LYMPHOMA
     Dosage: 100 MG/M2, ON DAYS 1 TO 5
     Route: 065
  6. EPIRUBICIN [Suspect]
     Active Substance: EPIRUBICIN
     Indication: LYMPHOMA
  7. CYCLOPHOSPHAMIDE. [Suspect]
     Active Substance: CYCLOPHOSPHAMIDE
     Indication: LYMPHOMA
  8. PREDNISONE. [Suspect]
     Active Substance: PREDNISONE
     Indication: LYMPHOMA

REACTIONS (1)
  - Death [Fatal]
